FAERS Safety Report 21693831 (Version 1)
Quarter: 2022Q4

REPORT INFORMATION
  Report Type: Spontaneous
  Country: US (occurrence: None)
  Receive Date: 20221206
  Receipt Date: 20221206
  Transmission Date: 20230113
  Serious: Yes (Other)
  Sender: FDA-Public Use
  Company Number: None

PATIENT
  Age: 8 Year
  Sex: Male
  Weight: 18.86 kg

DRUGS (2)
  1. CUVITRU [Suspect]
     Active Substance: HUMAN IMMUNOGLOBULIN G
     Indication: Immunodeficiency
     Dosage: FREQUENCY : WEEKLY;?
     Route: 058
     Dates: start: 20221104
  2. CUVITRU [Suspect]
     Active Substance: HUMAN IMMUNOGLOBULIN G
     Indication: Immunodeficiency
     Dosage: FREQUENCY : WEEKLY;?
     Route: 058
     Dates: start: 20221104

REACTIONS (7)
  - Infusion related reaction [None]
  - Pyrexia [None]
  - Lip swelling [None]
  - Swollen tongue [None]
  - Swelling face [None]
  - Blood pressure diastolic decreased [None]
  - Hypersensitivity [None]

NARRATIVE: CASE EVENT DATE: 20221204
